FAERS Safety Report 8313262-5 (Version None)
Quarter: 2012Q2

REPORT INFORMATION
  Report Type: 
  Country: None (occurrence: None)
  Receive Date: 20120426
  Receipt Date: 20120416
  Transmission Date: 20120825
  Serious: Yes (Hospitalization)
  Sender: FDA-Public Use
  Company Number: US-NOVOPROD-349597

PATIENT
  Age: 14 Year
  Sex: Female
  Weight: 31.4 kg

DRUGS (1)
  1. NORDITROPIN FLEXPRO [Suspect]
     Indication: BODY HEIGHT BELOW NORMAL
     Dosage: UNK
     Route: 058
     Dates: start: 20120406, end: 20120416

REACTIONS (1)
  - DYSPNOEA [None]
